FAERS Safety Report 6643003-9 (Version None)
Quarter: 2010Q1

REPORT INFORMATION
  Report Type: 
  Country: None (occurrence: None)
  Receive Date: 20100319
  Receipt Date: 20100310
  Transmission Date: 20100710
  Serious: Yes (Other)
  Sender: FDA-Public Use
  Company Number: A0850930A

PATIENT
  Sex: Female

DRUGS (2)
  1. PAROXETINE HCL [Suspect]
     Indication: MAJOR DEPRESSION
     Dosage: 12.5MG PER DAY
     Route: 048
     Dates: start: 20090929, end: 20100309
  2. LAMICTAL CD [Concomitant]
     Dosage: 100MG PER DAY
     Dates: start: 20090406

REACTIONS (3)
  - HAEMATOMA [None]
  - LEUKOCYTOCLASTIC VASCULITIS [None]
  - SKIN LESION [None]
